FAERS Safety Report 9640271 (Version 1)
Quarter: 2013Q4

REPORT INFORMATION
  Report Type: Spontaneous
  Country: US (occurrence: US)
  Receive Date: 20131023
  Receipt Date: 20131023
  Transmission Date: 20140711
  Serious: Yes (Hospitalization)
  Sender: FDA-Public Use
  Company Number: US-BAYER-2013-127988

PATIENT
  Age: 20 Year
  Sex: Female
  Weight: 90.25 kg

DRUGS (4)
  1. YAZ [Suspect]
  2. MALARONE [Concomitant]
     Dosage: 250-100 MG TABLETS, 21 DISPENSED.
  3. ACETAMINOPHEN W/PROPOXYPHENE [Concomitant]
     Indication: PAIN
     Dosage: 100 MG TABLET EVERY 4 HOURS AS NEEDED
  4. AZITHROMYCIN [Concomitant]
     Dosage: 500 MG TABLETS, 6 DISPENSED
     Dates: start: 20100621

REACTIONS (1)
  - Deep vein thrombosis [None]
